FAERS Safety Report 19685110 (Version 1)
Quarter: 2021Q3

REPORT INFORMATION
  Report Type: Report from Study
  Country: EG (occurrence: EG)
  Receive Date: 20210811
  Receipt Date: 20210811
  Transmission Date: 20211014
  Serious: Yes (Death, Hospitalization, Other)
  Sender: FDA-Public Use
  Company Number: NVSC2021EG180099

PATIENT
  Age: 66 Year
  Sex: Male

DRUGS (1)
  1. ENTRESTO [Suspect]
     Active Substance: SACUBITRIL\VALSARTAN
     Indication: CARDIAC FAILURE
     Dosage: 1 DF, BID (100 MG)
     Route: 048
     Dates: start: 20210215

REACTIONS (6)
  - COVID-19 [Not Recovered/Not Resolved]
  - Cardiac failure [Fatal]
  - Diabetes mellitus [Unknown]
  - Arterial occlusive disease [Fatal]
  - Dyspnoea [Not Recovered/Not Resolved]
  - Respiratory failure [Fatal]

NARRATIVE: CASE EVENT DATE: 20210410
